FAERS Safety Report 19821458 (Version 2)
Quarter: 2021Q3

REPORT INFORMATION
  Report Type: Spontaneous
  Country: CA (occurrence: CA)
  Receive Date: 20210913
  Receipt Date: 20210923
  Transmission Date: 20211014
  Serious: Yes (Hospitalization, Other)
  Sender: FDA-Public Use
  Company Number: CA-ACCORD-238331

PATIENT
  Age: 70 Year
  Sex: Female

DRUGS (8)
  1. CARBIDOPA/LEVODOPA [Suspect]
     Active Substance: CARBIDOPA\LEVODOPA
     Indication: PARKINSON^S DISEASE
     Dosage: 1 EVERY 1 DAYS
  2. NABILONE [Suspect]
     Active Substance: NABILONE
     Indication: PARKINSON^S DISEASE
     Route: 048
  3. CLOZAPINE. [Suspect]
     Active Substance: CLOZAPINE
     Indication: PSYCHOTIC DISORDER
  4. QUETIAPINE. [Suspect]
     Active Substance: QUETIAPINE
     Indication: PSYCHOTIC DISORDER
     Dosage: 1 EVERY 1 DAYS
     Route: 048
  5. PRAMIPEXOLE/PRAMIPEXOLE DIHYDROCHLORIDE [Suspect]
     Active Substance: PRAMIPEXOLE DIHYDROCHLORIDE
     Indication: PARKINSON^S DISEASE
     Dosage: 1 EVERY 1 DAYS
  6. AMANTADINE. [Suspect]
     Active Substance: AMANTADINE HYDROCHLORIDE
     Indication: PSYCHOTIC DISORDER
     Dosage: 1 EVERY 1 DAYS
  7. FLUDROCORTISONE [Suspect]
     Active Substance: FLUDROCORTISONE
     Indication: PARKINSON^S DISEASE
     Dosage: 1 EVERY 1 DAYS
  8. ENTACAPONE. [Suspect]
     Active Substance: ENTACAPONE
     Indication: PSYCHOTIC DISORDER
     Dosage: 1 EVERY 1 DAYS

REACTIONS (8)
  - Parkinson^s disease psychosis [Unknown]
  - Psychotic disorder [Unknown]
  - Dyskinesia [Unknown]
  - Orthostatic hypotension [Unknown]
  - Therapeutic product effect incomplete [Unknown]
  - Acute psychosis [Unknown]
  - Therapeutic response shortened [Unknown]
  - Dystonia [Unknown]
